FAERS Safety Report 24045173 (Version 3)
Quarter: 2025Q1

REPORT INFORMATION
  Report Type: Spontaneous
  Country: US (occurrence: US)
  Receive Date: 20240703
  Receipt Date: 20250207
  Transmission Date: 20250408
  Serious: No
  Sender: LUPIN
  Company Number: US-LUPIN PHARMACEUTICALS INC.-2024-05070

PATIENT
  Sex: Female

DRUGS (1)
  1. DESVENLAFAXINE SUCCINATE [Suspect]
     Active Substance: DESVENLAFAXINE SUCCINATE
     Indication: Suicidal ideation
     Route: 065

REACTIONS (3)
  - Drug ineffective [Unknown]
  - Therapeutic response changed [Unknown]
  - Mood altered [Unknown]
